FAERS Safety Report 7404291-4 (Version None)
Quarter: 2011Q2

REPORT INFORMATION
  Report Type: 
  Country: None (occurrence: None)
  Receive Date: 20110408
  Receipt Date: 20110331
  Transmission Date: 20111010
  Serious: Yes (Hospitalization)
  Sender: FDA-Public Use
  Company Number: BE-B.I. PHARMACEUTICALS,INC./RIDGEFIELD-2011-DE-01087DE

PATIENT
  Sex: Male
  Weight: 79 kg

DRUGS (5)
  1. TRAMADOL [Concomitant]
     Indication: CHEST PAIN
     Dosage: 100 MG
     Route: 048
     Dates: start: 20101227
  2. LOPERAMIDE [Suspect]
     Indication: DIARRHOEA
     Dosage: PRN
  3. MEDROL [Concomitant]
     Indication: COUGH
     Dosage: 16 MG
     Route: 048
     Dates: start: 20101228
  4. BIBW 2992 [Suspect]
     Indication: NON-SMALL CELL LUNG CANCER
     Dosage: 50 MG
     Route: 048
     Dates: start: 20100708
  5. TAMSULOSINE [Suspect]
     Indication: DYSURIA
     Dosage: 0.4 MG
     Route: 048
     Dates: start: 20110207

REACTIONS (5)
  - DIARRHOEA [None]
  - ABDOMINAL PAIN [None]
  - CHEST PAIN [None]
  - DYSURIA [None]
  - PANCREATITIS [None]
